FAERS Safety Report 22870772 (Version 6)
Quarter: 2023Q4

REPORT INFORMATION
  Report Type: Spontaneous
  Country: US (occurrence: US)
  Receive Date: 20230828
  Receipt Date: 20231220
  Transmission Date: 20240109
  Serious: No
  Sender: FDA-Public Use
  Company Number: US-GLAXOSMITHKLINE-US2023AMR112983

PATIENT
  Sex: Female

DRUGS (2)
  1. ZEJULA [Suspect]
     Active Substance: NIRAPARIB
     Indication: Ovarian cancer
     Dosage: 300 MG, QD
  2. ZEJULA [Suspect]
     Active Substance: NIRAPARIB
     Indication: Ovarian cancer
     Dosage: 300 MG, QD
     Dates: start: 202309, end: 20230922

REACTIONS (5)
  - Laboratory test abnormal [Recovered/Resolved]
  - Increased tendency to bruise [Recovered/Resolved]
  - Gingival bleeding [Recovered/Resolved]
  - Platelet count decreased [Recovered/Resolved]
  - Contusion [Recovered/Resolved]
